FAERS Safety Report 7277558-0 (Version None)
Quarter: 2011Q1

REPORT INFORMATION
  Report Type: 
  Country: None (occurrence: None)
  Receive Date: 20110207
  Receipt Date: 20110126
  Transmission Date: 20110831
  Serious: Yes (Life-Threatening, Hospitalization)
  Sender: FDA-Public Use
  Company Number: BR-GENZYME-THYM-1002288

PATIENT

DRUGS (1)
  1. THYMOGLOBULIN [Suspect]
     Indication: OCCUPATIONAL EXPOSURE TO DRUG
     Route: 065

REACTIONS (8)
  - URINE OUTPUT DECREASED [None]
  - BLOOD PRESSURE INCREASED [None]
  - ANAPHYLACTIC REACTION [None]
  - CHEST PAIN [None]
  - HAEMATURIA [None]
  - HEADACHE [None]
  - OCCUPATIONAL EXPOSURE TO DRUG [None]
  - HYPOAESTHESIA [None]
